FAERS Safety Report 5066510-1 (Version None)
Quarter: 2006Q3

REPORT INFORMATION
  Report Type: 
  Country: None (occurrence: None)
  Receive Date: 20060801
  Receipt Date: 20060712
  Transmission Date: 20061208
  Serious: Yes (Hospitalization)
  Sender: FDA-Public Use
  Company Number: JP-BRISTOL-MYERS SQUIBB COMPANY-13446505

PATIENT
  Age: 68 Year
  Sex: Male
  Weight: 48 kg

DRUGS (6)
  1. UFT [Suspect]
     Indication: OROPHARYNGEAL CANCER STAGE UNSPECIFIED
     Route: 048
     Dates: start: 20060202, end: 20060208
  2. CISPLATIN [Suspect]
     Indication: OROPHARYNGEAL CANCER STAGE UNSPECIFIED
     Route: 042
     Dates: start: 20060209, end: 20060326
  3. TS-1 [Suspect]
     Indication: OROPHARYNGEAL CANCER STAGE UNSPECIFIED
     Route: 048
     Dates: start: 20060420, end: 20060503
  4. TAXOTERE [Suspect]
     Indication: OROPHARYNGEAL CANCER STAGE UNSPECIFIED
     Route: 042
     Dates: start: 20060209, end: 20060322
  5. FLUOROURACIL [Suspect]
     Indication: OROPHARYNGEAL CANCER STAGE UNSPECIFIED
     Route: 042
     Dates: start: 20060210, end: 20060326
  6. LEUCOVORIN CALCIUM [Concomitant]
     Indication: OROPHARYNGEAL CANCER STAGE UNSPECIFIED
     Route: 042
     Dates: start: 20060209, end: 20060326

REACTIONS (1)
  - INTERSTITIAL LUNG DISEASE [None]
